FAERS Safety Report 25227262 (Version 2)
Quarter: 2025Q2

REPORT INFORMATION
  Report Type: Spontaneous
  Country: CA (occurrence: CA)
  Receive Date: 20250422
  Receipt Date: 20250514
  Transmission Date: 20250716
  Serious: Yes (Life-Threatening, Hospitalization, Other)
  Sender: PIERRE FABRE MEDICAMENT
  Company Number: CA-PFM-2025-01762

PATIENT
  Age: 7 Month
  Sex: Female

DRUGS (13)
  1. PROPRANOLOL [Suspect]
     Active Substance: PROPRANOLOL HYDROCHLORIDE
     Indication: Lymphangioma
     Dosage: 1.0 MG/KG, QD (1/DAY)
  2. PROPRANOLOL [Suspect]
     Active Substance: PROPRANOLOL HYDROCHLORIDE
     Indication: Off label use
  3. BLEOMYCIN [Suspect]
     Active Substance: BLEOMYCIN SULFATE
     Indication: Pleural effusion
     Route: 065
  4. DOXYCYCLINE [Suspect]
     Active Substance: DOXYCYCLINE
     Indication: Pleural effusion
     Route: 065
  5. INTERFERON [Suspect]
     Active Substance: INTERFERON
     Indication: Lymphangioma
  6. OCTREOTIDE [Suspect]
     Active Substance: OCTREOTIDE
     Indication: Pleural effusion
     Route: 065
  7. PREDNISONE [Suspect]
     Active Substance: PREDNISONE
     Indication: Lymphangioma
     Dosage: 1 MG/KG, 1 EVERY 1(DAYS)
  8. PREDNISONE [Suspect]
     Active Substance: PREDNISONE
     Indication: Pleural effusion
  9. SIROLIMUS [Suspect]
     Active Substance: SIROLIMUS
     Indication: Lymphangioma
  10. SIROLIMUS [Suspect]
     Active Substance: SIROLIMUS
     Indication: Pleural effusion
  11. SIROLIMUS [Suspect]
     Active Substance: SIROLIMUS
  12. TRAMETINIB [Suspect]
     Active Substance: TRAMETINIB
     Indication: Lymphangioma
     Dosage: 0.025 MG/KG, 1 EVERY 1 (DAYS)
     Route: 065
  13. VINCRISTINE [Suspect]
     Active Substance: VINCRISTINE
     Indication: Lymphangioma
     Dosage: 0.05 MG/KG, WEEKLY

REACTIONS (17)
  - Adrenal suppression [Recovering/Resolving]
  - Cataract subcapsular [Recovering/Resolving]
  - Cushingoid [Recovering/Resolving]
  - Cytomegalovirus infection [Recovered/Resolved]
  - Glomerulosclerosis [Recovering/Resolving]
  - Hypertension [Recovering/Resolving]
  - Infection [Recovering/Resolving]
  - Neuropathy peripheral [Recovering/Resolving]
  - Osteoporosis [Recovering/Resolving]
  - Proteinuria [Recovering/Resolving]
  - Pulmonary toxicity [Recovered/Resolved]
  - Renal disorder [Recovering/Resolving]
  - Drug ineffective [Unknown]
  - Product use in unapproved indication [Unknown]
  - Inappropriate schedule of product administration [Unknown]
  - Product administered to patient of inappropriate age [Unknown]
  - Off label use [Unknown]
